FAERS Safety Report 4302047-2 (Version None)
Quarter: 2004Q1

REPORT INFORMATION
  Report Type: 
  Country: None (occurrence: None)
  Receive Date: 20040220
  Receipt Date: 20040217
  Transmission Date: 20041129
  Serious: Yes (Hospitalization)
  Sender: FDA-Public Use
  Company Number: STA-AE-04-MTX-062

PATIENT
  Age: 69 Year
  Sex: Male

DRUGS (5)
  1. METHOTREXATE [Suspect]
     Indication: RHEUMATOID ARTHRITIS
     Dosage: 10 MG 1X PER 1 WK, ORAL
     Route: 048
     Dates: start: 19960615, end: 20031231
  2. REMICADE [Suspect]
     Indication: RHEUMATOID ARTHRITIS
     Dosage: 200 MG 1X PER 8 WK, INTRAVENOUS
     Route: 042
     Dates: start: 20030528, end: 20031103
  3. FOLIC ACID [Concomitant]
  4. ADALAT [Concomitant]
  5. PREDNISONE [Concomitant]

REACTIONS (1)
  - B-CELL LYMPHOMA [None]
